FAERS Safety Report 4751246-4 (Version None)
Quarter: 2005Q3

REPORT INFORMATION
  Report Type: 
  Country: None (occurrence: None)
  Receive Date: 20050823
  Receipt Date: 20050823
  Transmission Date: 20060218
  Serious: Yes (Hospitalization)
  Sender: FDA-Public Use
  Company Number: None

PATIENT
  Sex: Female
  Weight: 94.575 kg

DRUGS (9)
  1. TAXOTERE [Suspect]
     Indication: BREAST CANCER METASTATIC
     Dosage: 150 MG    DAY 1 -Q21DAYS-   IV DRIP
     Route: 041
     Dates: start: 20041104, end: 20050415
  2. GEMCITABINE    750 MG/M2 [Suspect]
     Indication: BREAST CANCER METASTATIC
     Dosage: 1500 MG   DAY 1+8  -Q21DAYS-   IV DRIP
     Route: 041
     Dates: start: 20041104, end: 20050415
  3. NEUPOGEN [Concomitant]
  4. NEURONTIN [Concomitant]
  5. PROTONIX [Concomitant]
  6. DESYREL [Concomitant]
  7. TENORMIN [Concomitant]
  8. FOLIC ACID [Concomitant]
  9. VITAMIN B6 [Concomitant]

REACTIONS (5)
  - DIVERTICULITIS [None]
  - INFECTION [None]
  - NEUTROPHIL COUNT [None]
  - NEUTROPHIL COUNT ABNORMAL [None]
  - URINARY TRACT INFECTION [None]
